FAERS Safety Report 4532420-9 (Version None)
Quarter: 2004Q4

REPORT INFORMATION
  Report Type: 
  Country: None (occurrence: None)
  Receive Date: 20041217
  Receipt Date: 20041206
  Transmission Date: 20050328
  Serious: Yes (Hospitalization, Other)
  Sender: FDA-Public Use
  Company Number: HQWYE615326AUG04

PATIENT
  Age: 20 Year
  Sex: Female

DRUGS (30)
  1. ZOSYN [Suspect]
     Indication: ABDOMINAL INFECTION
     Dosage: ONE DOSE AT 3.375 G, INTRAVENOUS
     Route: 042
     Dates: start: 20011112, end: 20011112
  2. DEMEROL [Concomitant]
  3. TYLENOL [Concomitant]
  4. TORADOL [Concomitant]
  5. ZOFRAN [Concomitant]
  6. LACTATED RINGER'S (CALCIUM CHLORIDE DIHYDRATE/POTASSIUM CHLORIDE/SODIU [Concomitant]
  7. FENTANYL [Concomitant]
  8. DESFLURANE (DESFLURANE) [Concomitant]
  9. INAPSINE [Concomitant]
  10. PEPCID [Concomitant]
  11. TIMENTIN [Concomitant]
  12. DIPRIVAN [Concomitant]
  13. NEOSTIGMINE (NEOSTIGMINE) [Concomitant]
  14. TIMENTIN (CLAVULANIC ACID/TICARCILLIN DISODIUM)PEPCID (FAMOTIDINE) [Concomitant]
  15. TIMENTIN [Concomitant]
  16. DIPRIVAN [Concomitant]
  17. NEOSTIGMINE (NEOSTIGMINE) [Concomitant]
  18. GLYCOPYRRONIUM BROMIDE (GLYCOPYRRONIUM BROMIDE) [Concomitant]
  19. AMPICILLIN [Concomitant]
  20. CLINDAMYCIN (CLINDAMYCIN) [Concomitant]
  21. GENTAMICIN [Concomitant]
  22. TEQUIN [Concomitant]
  23. CEFOXITIN (CEFOXITIN) [Concomitant]
  24. DOXYCYCLINE [Concomitant]
  25. ETOMIDATE (ETOMIDATE) [Concomitant]
  26. NIMBEX [Concomitant]
  27. ZEMURON [Concomitant]
  28. DESFLURANE (DESFLURANE) [Concomitant]
  29. MORPHINE SULFATE [Concomitant]
  30. DEXTROSE AND SODIUM CHLORIDE (GLUCOSE /SODIUM CHLORIDE) [Concomitant]

REACTIONS (15)
  - ACUTE RESPIRATORY DISTRESS SYNDROME [None]
  - AGITATION [None]
  - BACK PAIN [None]
  - BLOOD PHOSPHORUS DECREASED [None]
  - BRADYCARDIA [None]
  - HYPERGLYCAEMIA [None]
  - HYPERSENSITIVITY [None]
  - HYPOCALCAEMIA [None]
  - HYPOGLYCAEMIA [None]
  - HYPOMAGNESAEMIA [None]
  - LEUKOCYTOSIS [None]
  - PHARYNGEAL OEDEMA [None]
  - POST PROCEDURAL COMPLICATION [None]
  - PULMONARY OEDEMA [None]
  - RESPIRATORY ACIDOSIS [None]
